FAERS Safety Report 5004400-0 (Version None)
Quarter: 2006Q2

REPORT INFORMATION
  Report Type: 
  Country: None (occurrence: None)
  Receive Date: 20060517
  Receipt Date: 20060510
  Transmission Date: 20061013
  Serious: Yes (Other)
  Sender: FDA-Public Use
  Company Number: US-SOLVAY-00206001544

PATIENT
  Age: 45 Year
  Sex: Male
  Weight: 93 kg

DRUGS (2)
  1. NEXIUM [Concomitant]
     Indication: ILL-DEFINED DISORDER
     Dosage: DAILY DOSE:  UNKNOWN
     Route: 048
  2. ANDROGEL [Suspect]
     Indication: BLOOD TESTOSTERONE DECREASED
     Dosage: DAILY DOSE: 5 GRAM(S)
     Route: 062
     Dates: start: 20050601

REACTIONS (4)
  - AFFECT LABILITY [None]
  - ANGER [None]
  - MOOD ALTERED [None]
  - TESTIS CANCER [None]
